FAERS Safety Report 5095403-9 (Version None)
Quarter: 2006Q3

REPORT INFORMATION
  Report Type: 
  Country: None (occurrence: None)
  Receive Date: 20060901
  Receipt Date: 20060719
  Transmission Date: 20061208
  Serious: Yes (Other)
  Sender: FDA-Public Use
  Company Number: US-ROCHE-456406

PATIENT
  Age: 53 Year
  Sex: Female
  Weight: 67.1 kg

DRUGS (1)
  1. BONIVA [Suspect]
     Indication: OSTEOPENIA
     Dosage: STRENGTH REPORTED AS 3 MG/3ML.
     Route: 042
     Dates: start: 20060712, end: 20060712

REACTIONS (1)
  - INJECTION SITE CELLULITIS [None]
